FAERS Safety Report 18578546 (Version 1)
Quarter: 2020Q4

REPORT INFORMATION
  Report Type: Spontaneous
  Country: CN (occurrence: CN)
  Receive Date: 20201204
  Receipt Date: 20201204
  Transmission Date: 20210114
  Serious: Yes (Other)
  Sender: FDA-Public Use
  Company Number: CN-SUN PHARMACEUTICAL INDUSTRIES LTD-2020R1-269744

PATIENT
  Age: 42 Year
  Sex: Female

DRUGS (13)
  1. MORPHINE [Suspect]
     Active Substance: MORPHINE
     Dosage: 180 MILLIGRAM,UNK
     Route: 048
  2. MORPHINE [Suspect]
     Active Substance: MORPHINE
     Dosage: 30 MILLIGRAM,UNK
     Route: 048
  3. MORPHINE [Suspect]
     Active Substance: MORPHINE
     Dosage: 30 MILLIGRAM, BID
     Route: 048
  4. MORPHINE [Suspect]
     Active Substance: MORPHINE
     Dosage: 90 MILLIGRAM, BID
     Route: 048
  5. MORPHINE [Suspect]
     Active Substance: MORPHINE
     Dosage: 480 MILLIGRAM, DAILY
     Route: 048
  6. MORPHINE [Suspect]
     Active Substance: MORPHINE
     Dosage: 10 MILLIGRAM, DAILY
     Route: 042
  7. MORPHINE [Suspect]
     Active Substance: MORPHINE
     Indication: HEADACHE
     Dosage: 5 MILLIGRAM,UNK
     Route: 065
  8. MORPHINE [Suspect]
     Active Substance: MORPHINE
     Dosage: 240 MILLIGRAM, DAILY
  9. MORPHINE [Suspect]
     Active Substance: MORPHINE
     Dosage: 60 MILLIGRAM,UNK
     Route: 048
  10. MORPHINE [Suspect]
     Active Substance: MORPHINE
     Dosage: 330 MILLIGRAM, BID
     Route: 048
  11. MORPHINE [Suspect]
     Active Substance: MORPHINE
     Dosage: 120 MILLIGRAM,UNK
     Route: 048
  12. MORPHINE [Suspect]
     Active Substance: MORPHINE
     Dosage: 150 MILLIGRAM, BID
     Route: 048
  13. MORPHINE [Suspect]
     Active Substance: MORPHINE
     Dosage: 240 MILLIGRAM, BID
     Route: 048

REACTIONS (6)
  - Muscle strength abnormal [Recovering/Resolving]
  - Hypoaesthesia [Recovered/Resolved]
  - Nausea [Recovered/Resolved]
  - Vomiting [Recovered/Resolved]
  - Urine abnormality [Recovered/Resolved]
  - Pruritus [Recovered/Resolved]
